FAERS Safety Report 21847849 (Version 3)
Quarter: 2023Q1

REPORT INFORMATION
  Report Type: Report from Study
  Country: NL (occurrence: NL)
  Receive Date: 20230111
  Receipt Date: 20230123
  Transmission Date: 20230417
  Serious: Yes (Hospitalization)
  Sender: FDA-Public Use
  Company Number: NL-002147023-NVSC2023NL000642

PATIENT
  Age: 61 Year
  Sex: Female
  Weight: 71 kg

DRUGS (13)
  1. ALPELISIB [Suspect]
     Active Substance: ALPELISIB
     Indication: Ovarian cancer
     Dosage: 200 MG, QD (DAILY)
     Route: 048
     Dates: start: 20221220, end: 20221229
  2. OLAPARIB [Suspect]
     Active Substance: OLAPARIB
     Indication: Ovarian cancer
     Dosage: 200 MG, BID
     Route: 048
     Dates: start: 20221220, end: 20221229
  3. BISOPROLOL [Concomitant]
     Active Substance: BISOPROLOL
     Indication: Hypertension
     Dosage: UNK
     Route: 065
     Dates: start: 20220822
  4. LOPERAMIDE [Concomitant]
     Active Substance: LOPERAMIDE
     Indication: General physical condition
     Dosage: UNK
     Route: 065
     Dates: start: 20220428, end: 20230109
  5. ACETAMINOPHEN [Concomitant]
     Active Substance: ACETAMINOPHEN
     Indication: Abdominal pain upper
     Dosage: UNK
     Route: 065
     Dates: start: 20220322
  6. ACETAMINOPHEN [Concomitant]
     Active Substance: ACETAMINOPHEN
     Indication: Pain in extremity
  7. VITAMIN B12 [Concomitant]
     Active Substance: CYANOCOBALAMIN
     Indication: General physical condition
     Dosage: UNK
     Route: 065
     Dates: start: 20220320
  8. CALCIUM [Concomitant]
     Active Substance: CALCIUM
     Indication: General physical condition
     Dosage: UNK
     Route: 065
     Dates: start: 20220320
  9. CETIRIZINE [Concomitant]
     Active Substance: CETIRIZINE HYDROCHLORIDE
     Indication: Ovarian cancer
     Dosage: UNK
     Route: 065
     Dates: start: 20221220
  10. PANTOPRAZOLE SODIUM [Concomitant]
     Active Substance: PANTOPRAZOLE SODIUM
     Indication: Nausea
     Dosage: UNK
     Route: 065
     Dates: start: 20221223
  11. PANTOPRAZOLE SODIUM [Concomitant]
     Active Substance: PANTOPRAZOLE SODIUM
     Indication: Gastric pH decreased
  12. OXYCODONE [Concomitant]
     Active Substance: OXYCODONE
     Indication: Pain in extremity
     Dosage: UNK
     Route: 065
     Dates: start: 20221230
  13. SODIUM CHLORIDE [Concomitant]
     Active Substance: SODIUM CHLORIDE
     Indication: Acute kidney injury
     Dosage: UNK
     Route: 065
     Dates: start: 20230103, end: 20230109

REACTIONS (1)
  - Hyponatraemia [Recovered/Resolved with Sequelae]

NARRATIVE: CASE EVENT DATE: 20230102
